FAERS Safety Report 14998696 (Version 1)
Quarter: 2018Q2

REPORT INFORMATION
  Report Type: Report from Study
  Country: US (occurrence: US)
  Receive Date: 20180612
  Receipt Date: 20180612
  Transmission Date: 20180711
  Serious: Yes (Hospitalization)
  Sender: FDA-Public Use
  Company Number: US-ROCHE-2064308

PATIENT
  Sex: Female
  Weight: 85.35 kg

DRUGS (15)
  1. ESBRIET [Suspect]
     Active Substance: PIRFENIDONE
     Indication: IDIOPATHIC PULMONARY FIBROSIS
     Dosage: 9 PILLS A DAY
     Route: 048
  2. ESBRIET [Suspect]
     Active Substance: PIRFENIDONE
     Dosage: 3 TABLETS 3 TIMES A DAY; ONGOING: NO
     Route: 048
  3. VITAMIN D3 [Concomitant]
     Active Substance: CHOLECALCIFEROL
     Dosage: 2 TABLETS PER DAY
     Route: 048
  4. ESBRIET [Suspect]
     Active Substance: PIRFENIDONE
     Dosage: TWO 267MG THREE TIMES A DAY
     Route: 048
     Dates: start: 20171125
  5. MONTELUKAST [Concomitant]
     Active Substance: MONTELUKAST SODIUM
     Indication: HYPERSENSITIVITY
     Route: 048
  6. ESBRIET [Suspect]
     Active Substance: PIRFENIDONE
     Dosage: 2 TABLETS WITH LUNCH AND DINNER
     Route: 048
     Dates: start: 20171125
  7. ATORVASTATIN [Concomitant]
     Active Substance: ATORVASTATIN
     Indication: BLOOD PRESSURE MEASUREMENT
     Route: 048
  8. ASPIRIN. [Concomitant]
     Active Substance: ASPIRIN
     Dosage: 4 TABLETS ONCE DAILY; ONGOING:YES
     Route: 048
  9. METOPROLOL. [Concomitant]
     Active Substance: METOPROLOL
     Indication: HYPERTENSION
     Route: 048
  10. PROAIR HFA [Concomitant]
     Active Substance: ALBUTEROL SULFATE
     Dosage: 2 PUFFS AS NEEDED; ONGOING YES
     Route: 065
  11. ESBRIET [Suspect]
     Active Substance: PIRFENIDONE
     Dosage: UNKNOWN LOWER DOSAGE
     Route: 048
  12. VITAMIN C [Concomitant]
     Active Substance: ASCORBIC ACID
     Route: 048
  13. ESBRIET [Suspect]
     Active Substance: PIRFENIDONE
     Dosage: 9 PILLS DAILY
     Route: 048
     Dates: start: 20171125, end: 20180527
  14. ESBRIET [Suspect]
     Active Substance: PIRFENIDONE
     Indication: IDIOPATHIC INTERSTITIAL PNEUMONIA
     Dosage: 6 PILLS A DAY
     Route: 048
  15. FISH OIL [Concomitant]
     Active Substance: FISH OIL
     Route: 048

REACTIONS (11)
  - Extrasystoles [Unknown]
  - Diarrhoea [Recovered/Resolved with Sequelae]
  - Gastric disorder [Recovered/Resolved]
  - Asthenia [Recovering/Resolving]
  - Diarrhoea [Recovered/Resolved]
  - Drug intolerance [Recovered/Resolved]
  - Malaise [Not Recovered/Not Resolved]
  - Hypertension [Unknown]
  - Malaise [Recovering/Resolving]
  - Abdominal pain upper [Recovered/Resolved with Sequelae]
  - Abdominal discomfort [Unknown]
